FAERS Safety Report 16810588 (Version 1)
Quarter: 2019Q4

REPORT INFORMATION
  Report Type: Spontaneous
  Country: US (occurrence: US)
  Receive Date: 20190916
  Receipt Date: 20190916
  Transmission Date: 20200122
  Serious: Yes (Hospitalization)
  Sender: FDA-Public Use
  Company Number: None

PATIENT
  Sex: Female

DRUGS (9)
  1. FORTEO [Suspect]
     Active Substance: TERIPARATIDE
     Indication: OSTEOPOROSIS
     Route: 058
     Dates: start: 20180709
  2. METHOTREXATE. [Concomitant]
     Active Substance: METHOTREXATE
  3. TAMSULOSIN [Concomitant]
     Active Substance: TAMSULOSIN
  4. HYDROCHLOROTHIAZIDE. [Concomitant]
     Active Substance: HYDROCHLOROTHIAZIDE
  5. LEVOFLOXACIN. [Concomitant]
     Active Substance: LEVOFLOXACIN
  6. BUDESONIDE. [Concomitant]
     Active Substance: BUDESONIDE
  7. FOLIC ACID. [Concomitant]
     Active Substance: FOLIC ACID
  8. CELECOXIB. [Concomitant]
     Active Substance: CELECOXIB
  9. FINASTERIDE. [Concomitant]
     Active Substance: FINASTERIDE

REACTIONS (2)
  - Urinary tract infection [None]
  - Product dose omission [None]
